FAERS Safety Report 8077407-7 (Version None)
Quarter: 2012Q1

REPORT INFORMATION
  Report Type: 
  Country: None (occurrence: None)
  Receive Date: 20120127
  Receipt Date: 20120124
  Transmission Date: 20120608
  Serious: Yes (Life-Threatening)
  Sender: FDA-Public Use
  Company Number: PHHY2012PT006391

PATIENT
  Sex: Male

DRUGS (4)
  1. ACETYLSALICYLIC ACID SRT [Concomitant]
     Dosage: UNK UKN, UNK
  2. METFORMIN HYDROCHLORIDE W/VILDAGLIPTIN [Concomitant]
     Dosage: UNK UKN, UNK
     Dates: start: 20090101
  3. OMEPRAZOLE [Concomitant]
     Dosage: UNK UKN, UNK
  4. VOLTAREN [Suspect]
     Indication: PAIN
     Dosage: 75 MG
     Route: 048
     Dates: start: 20120112, end: 20120112

REACTIONS (5)
  - HYPOTENSION [None]
  - BRONCHOSPASM [None]
  - LARYNGOSPASM [None]
  - RASH [None]
  - RASH PRURITIC [None]
